FAERS Safety Report 15113661 (Version 1)
Quarter: 2018Q3

REPORT INFORMATION
  Report Type: Spontaneous
  Country: KR (occurrence: KR)
  Receive Date: 20180706
  Receipt Date: 20180706
  Transmission Date: 20181010
  Serious: Yes (Other)
  Sender: FDA-Public Use
  Company Number: KR-ACCORD-069285

PATIENT
  Age: 48 Year
  Sex: Female
  Weight: 55.3 kg

DRUGS (10)
  1. GLYCOPYRRONIUM [Concomitant]
     Active Substance: GLYCOPYRRONIUM
     Indication: PREMEDICATION
  2. PYRIDOSTIGMINE [Concomitant]
     Active Substance: PYRIDOSTIGMINE
  3. PROPOFOL. [Concomitant]
     Active Substance: PROPOFOL
     Indication: ANAESTHESIA
     Dosage: USING A TARGET?CONTROLLED INFUSION PUMP
  4. FAMOTIDINE. [Concomitant]
     Active Substance: FAMOTIDINE
     Route: 042
  5. CISPLATIN. [Suspect]
     Active Substance: CISPLATIN
     Indication: LUNG ADENOCARCINOMA
     Dosage: 200 MG PER BODY SURFACE AREA WITH NORMAL SALINE
  6. REMIFENTANIL/REMIFENTANIL HYDROCHLORIDE [Concomitant]
     Indication: ANAESTHESIA
     Dosage: USING A TARGET?CONTROLLED INFUSION PUMP
  7. CHLORPHENAMINE [Concomitant]
     Active Substance: CHLORPHENIRAMINE MALEATE
     Route: 042
  8. DEXAMETHASONE. [Concomitant]
     Active Substance: DEXAMETHASONE
     Route: 042
  9. SODIUM THIOSULFATE [Concomitant]
     Active Substance: SODIUM THIOSULFATE
     Dosage: 25%
     Route: 042
  10. MANNITOL. [Concomitant]
     Active Substance: MANNITOL
     Dosage: 15 %
     Route: 042

REACTIONS (1)
  - Vascular resistance pulmonary increased [Unknown]
